FAERS Safety Report 9705902 (Version 1)
Quarter: 2013Q4

REPORT INFORMATION
  Report Type: Spontaneous
  Country: US (occurrence: US)
  Receive Date: 20131122
  Receipt Date: 20131122
  Transmission Date: 20140711
  Serious: No
  Sender: FDA-Public Use
  Company Number: US-GALDERMA-US13001448

PATIENT
  Age: 57 Year
  Sex: Female

DRUGS (1)
  1. CLOBEX (CLOBETASOL PROPIONATE) SPRAY, 0.05% [Suspect]
     Indication: PSORIASIS
     Route: 061

REACTIONS (2)
  - Accidental exposure to product [Recovered/Resolved]
  - Expired drug administered [Not Recovered/Not Resolved]
